FAERS Safety Report 4293657-X (Version None)
Quarter: 2004Q1

REPORT INFORMATION
  Report Type: 
  Country: None (occurrence: None)
  Receive Date: 20040212
  Receipt Date: 20040122
  Transmission Date: 20041129
  Serious: Yes (Death, Life-Threatening, Hospitalization)
  Sender: FDA-Public Use
  Company Number: PHEH2004US01170

PATIENT
  Age: 41 Year
  Sex: Female
  Weight: 65 kg

DRUGS (6)
  1. ZELNORM [Suspect]
     Indication: IRRITABLE BOWEL SYNDROME
     Dosage: 6 MG, BID
     Route: 048
  2. LITHOBID [Concomitant]
     Dosage: 3 X 300 MG/QHS
     Route: 048
  3. SEROQUEL [Concomitant]
     Dosage: 100 MG, QHS
     Route: 048
  4. AMBIEN [Concomitant]
     Dosage: 10 MG, QHS
     Route: 048
  5. ALBUTEROL [Concomitant]
     Dosage: 2 PUFFS EVERY 4-6 HR
  6. LEVOXYL [Concomitant]
     Dosage: .15 MG, UNK
     Route: 048

REACTIONS (10)
  - ABDOMINAL PAIN [None]
  - BACTERIAL INFECTION [None]
  - BRAIN DEATH [None]
  - CARDIAC ARREST [None]
  - CIRCULATORY COLLAPSE [None]
  - INTESTINAL GANGRENE [None]
  - LARGE INTESTINE PERFORATION [None]
  - LOSS OF CONSCIOUSNESS [None]
  - PURULENT DISCHARGE [None]
  - SURGERY [None]
